FAERS Safety Report 21919585 (Version 2)
Quarter: 2023Q1

REPORT INFORMATION
  Report Type: Spontaneous
  Country: IT (occurrence: IT)
  Receive Date: 20230127
  Receipt Date: 20230201
  Transmission Date: 20230417
  Serious: Yes (Hospitalization)
  Sender: FDA-Public Use
  Company Number: IT-MINISAL02-903828

PATIENT
  Age: 55 Year
  Sex: Female

DRUGS (4)
  1. OXALIPLATIN [Suspect]
     Active Substance: OXALIPLATIN
     Indication: Colon cancer
     Dosage: 118.98 MILLIGRAM, FORTNIGHT
     Route: 040
     Dates: start: 20210427, end: 20221122
  2. FLUOROURACIL [Concomitant]
     Active Substance: FLUOROURACIL
     Indication: Colon cancer
     Dosage: 2524.86 MILLIGRAM, WEEKLY
     Route: 040
  3. ALYMSYS [Concomitant]
     Active Substance: BEVACIZUMAB-MALY
     Indication: Colon cancer
     Dosage: 295 MILLIGRAM, FORTNIGHT
     Route: 040
  4. IRINOTECAN HYDROCHLORIDE [Concomitant]
     Active Substance: IRINOTECAN HYDROCHLORIDE
     Indication: Colon cancer
     Dosage: 184.37 MILLIGRAM, FORTNIGHT
     Route: 040

REACTIONS (1)
  - Palmar erythema [Recovered/Resolved]

NARRATIVE: CASE EVENT DATE: 20221122
